FAERS Safety Report 12566935 (Version 1)
Quarter: 2016Q3

REPORT INFORMATION
  Report Type: Spontaneous
  Country: SE (occurrence: SE)
  Receive Date: 20160718
  Receipt Date: 20160718
  Transmission Date: 20161109
  Serious: Yes (Hospitalization)
  Sender: FDA-Public Use
  Company Number: SE-TEVA-675036ISR

PATIENT
  Age: 52 Year
  Sex: Female

DRUGS (1)
  1. BISOPROLOL [Suspect]
     Active Substance: BISOPROLOL
     Route: 048

REACTIONS (9)
  - Heart rate decreased [Recovered/Resolved with Sequelae]
  - Diarrhoea [Recovered/Resolved with Sequelae]
  - Peripheral coldness [Recovered/Resolved with Sequelae]
  - Fatigue [Recovered/Resolved with Sequelae]
  - Pleural effusion [Recovered/Resolved with Sequelae]
  - Weight increased [Recovered/Resolved with Sequelae]
  - Pigmentation disorder [Recovered/Resolved with Sequelae]
  - Lacrimation decreased [Recovered/Resolved with Sequelae]
  - Asthma [Recovered/Resolved with Sequelae]
